FAERS Safety Report 10327072 (Version 1)
Quarter: 2014Q3

REPORT INFORMATION
  Report Type: Spontaneous
  Country: JP (occurrence: JP)
  Receive Date: 20140720
  Receipt Date: 20140720
  Transmission Date: 20150326
  Serious: Yes (Other)
  Sender: FDA-Public Use
  Company Number: PHHY2012JP132582

PATIENT

DRUGS (3)
  1. TASIGNA [Suspect]
     Active Substance: NILOTINIB
     Indication: CHRONIC MYELOID LEUKAEMIA
     Dosage: UNK
     Dates: start: 201210
  2. DASATINIB [Suspect]
     Active Substance: DASATINIB
     Dosage: UNK
  3. DASATINIB [Suspect]
     Active Substance: DASATINIB
     Dosage: UNK

REACTIONS (1)
  - Blood triglycerides increased [Recovering/Resolving]
